FAERS Safety Report 5053137-0 (Version None)
Quarter: 2006Q3

REPORT INFORMATION
  Report Type: 
  Country: None (occurrence: None)
  Receive Date: 20060711
  Receipt Date: 20060420
  Transmission Date: 20061208
  Serious: Yes (Hospitalization, Other)
  Sender: FDA-Public Use
  Company Number: HQWYE510030JUN06

PATIENT
  Age: 53 Year
  Sex: Female

DRUGS (11)
  1. PREMARIN [Suspect]
     Indication: METRORRHAGIA
     Dosage: 0.625 MG 1X PER 1 DAY ORAL - SEE IMAGE
     Route: 048
     Dates: start: 20060401, end: 20060531
  2. PREMARIN [Suspect]
     Indication: METRORRHAGIA
     Dosage: 0.625 MG 1X PER 1 DAY ORAL - SEE IMAGE
     Route: 048
     Dates: start: 20060612, end: 20060601
  3. RASPJINE            (AZELASTINE HYDROCHLORIDE) [Concomitant]
  4. CLARITHROMYCIN [Concomitant]
  5. MUCODYNE (CARBOCISTEINE) [Concomitant]
  6. ADVERIN (TIPEPIDINE HIBENZATE) [Concomitant]
  7. GLORIAMIN   (AZULENE SODIUM SULFONATE/LEVOGLUTAMIDE) [Concomitant]
  8. MEQUITAZINE     (MEQUITAZINE) [Concomitant]
  9. AMOXICILLIN [Concomitant]
  10. MEFENAMIC ACID [Concomitant]
  11. LYSOZYME HYDROCHLORIDE                  (LYSOZYME HYDROCHLORIDE) [Concomitant]

REACTIONS (1)
  - EOSINOPHILIC PNEUMONIA [None]
